FAERS Safety Report 18643124 (Version 1)
Quarter: 2020Q4

REPORT INFORMATION
  Report Type: Spontaneous
  Country: US (occurrence: US)
  Receive Date: 20201218
  Receipt Date: 20201218
  Transmission Date: 20210114
  Serious: No
  Sender: FDA-Public Use
  Company Number: None

PATIENT
  Age: 62 Year
  Sex: Male
  Weight: 63 kg

DRUGS (2)
  1. CARVEDILOL (CARVEDILOL 25MG TAB) [Suspect]
     Active Substance: CARVEDILOL
     Indication: HYPERTENSION
     Route: 048
     Dates: start: 20201203, end: 20201217
  2. CARVEDILOL (CARVEDILOL 25MG TAB) [Suspect]
     Active Substance: CARVEDILOL
     Indication: ATRIAL FIBRILLATION
     Route: 048
     Dates: start: 20201203, end: 20201217

REACTIONS (4)
  - Tachypnoea [None]
  - Chronic obstructive pulmonary disease [None]
  - Blood pressure decreased [None]
  - Dyspnoea [None]

NARRATIVE: CASE EVENT DATE: 20201216
